FAERS Safety Report 6190795-1 (Version None)
Quarter: 2009Q2

REPORT INFORMATION
  Report Type: 
  Country: None (occurrence: None)
  Receive Date: 20090513
  Receipt Date: 20090513
  Transmission Date: 20091009
  Serious: Yes (Other)
  Sender: FDA-Public Use
  Company Number: None

PATIENT
  Sex: Female
  Weight: 77.1115 kg

DRUGS (2)
  1. TRICOR [Suspect]
     Indication: BLOOD TRIGLYCERIDES INCREASED
     Dosage: 1 TABLET 1 X DAILY PO
     Route: 048
     Dates: start: 19990601, end: 20090512
  2. LIPITOR [Suspect]
     Indication: BLOOD CHOLESTEROL INCREASED
     Dosage: 1 TABLET 1 X DAILY PO
     Route: 048
     Dates: start: 19990601, end: 20090512

REACTIONS (20)
  - CONSTIPATION [None]
  - CONTUSION [None]
  - DIPLOPIA [None]
  - DISTURBANCE IN ATTENTION [None]
  - DRY MOUTH [None]
  - DYSGEUSIA [None]
  - FATIGUE [None]
  - HIP FRACTURE [None]
  - IMPAIRED HEALING [None]
  - MEMORY IMPAIRMENT [None]
  - MYALGIA [None]
  - OEDEMA PERIPHERAL [None]
  - PARAESTHESIA [None]
  - RENAL IMPAIRMENT [None]
  - SINUSITIS [None]
  - THROAT TIGHTNESS [None]
  - TINNITUS [None]
  - URINE OUTPUT DECREASED [None]
  - VISUAL ACUITY REDUCED [None]
  - WEIGHT INCREASED [None]
